FAERS Safety Report 6586696-7 (Version None)
Quarter: 2010Q1

REPORT INFORMATION
  Report Type: 
  Country: None (occurrence: None)
  Receive Date: 20100217
  Receipt Date: 20090702
  Transmission Date: 20100710
  Serious: No
  Sender: FDA-Public Use
  Company Number: US-ALLERGAN-0909352US

PATIENT
  Age: 70 Year
  Sex: Female

DRUGS (2)
  1. BOTOX [Suspect]
     Indication: BLEPHAROSPASM
     Dosage: 100 UNITS, EVERY 3 MONTHS
     Route: 030
     Dates: start: 19990101
  2. BOTOX [Suspect]
     Indication: MUSCLE CONTRACTIONS INVOLUNTARY

REACTIONS (4)
  - DYSPHAGIA [None]
  - DYSPHONIA [None]
  - DYSPNOEA [None]
  - MUSCLE CONTRACTIONS INVOLUNTARY [None]
